FAERS Safety Report 4332559-7 (Version None)
Quarter: 2004Q1

REPORT INFORMATION
  Report Type: 
  Country: None (occurrence: None)
  Receive Date: 20040330
  Receipt Date: 20040318
  Transmission Date: 20041129
  Serious: Yes (Hospitalization)
  Sender: FDA-Public Use
  Company Number: JP-JNJFOC-20040304423

PATIENT
  Age: 59 Year
  Sex: Female
  Weight: 60 kg

DRUGS (5)
  1. REMICADE [Suspect]
     Indication: RHEUMATOID ARTHRITIS
     Dosage: 3 MG/KG, 1 IN 1 AS NECESSARY, INTRAVENOUS DRIP; SEE IMAGE
     Route: 041
     Dates: start: 20040129, end: 20040129
  2. REMICADE [Suspect]
     Indication: RHEUMATOID ARTHRITIS
     Dosage: 3 MG/KG, 1 IN 1 AS NECESSARY, INTRAVENOUS DRIP; SEE IMAGE
     Route: 041
     Dates: start: 20040212, end: 20040212
  3. RHEUMATREX [Suspect]
     Dosage: 5 MG, IN 1 WEEK; SEE IMAGE
     Dates: start: 20031203, end: 20031216
  4. RHEUMATREX [Suspect]
     Dosage: 5 MG, IN 1 WEEK; SEE IMAGE
     Dates: start: 20031217, end: 20040310
  5. RHEUMATREX [Suspect]
     Dosage: 5 MG, IN 1 WEEK; SEE IMAGE
     Dates: start: 19970101

REACTIONS (6)
  - AMYLOIDOSIS [None]
  - CARDIAC FAILURE [None]
  - CONCOMITANT DISEASE AGGRAVATED [None]
  - DRUG INTERACTION [None]
  - INTERSTITIAL LUNG DISEASE [None]
  - THERAPEUTIC PRODUCT INEFFECTIVE [None]
